FAERS Safety Report 24098262 (Version 1)
Quarter: 2024Q3

REPORT INFORMATION
  Report Type: Spontaneous
  Country: JP (occurrence: JP)
  Receive Date: 20240716
  Receipt Date: 20240716
  Transmission Date: 20241016
  Serious: Yes (Other)
  Sender: TEVA
  Company Number: JP-TEVA-VS-3220995

PATIENT
  Age: 78 Year
  Sex: Male

DRUGS (1)
  1. DUTASTERIDE [Suspect]
     Active Substance: DUTASTERIDE
     Indication: Product used for unknown indication
     Dosage: DOSAGE IS UNKNOWN,  CAP. 0.5MG AV ^TAKEDA TEVA^
     Route: 048

REACTIONS (2)
  - Foreign body in throat [Unknown]
  - Throat irritation [Unknown]
